FAERS Safety Report 9735466 (Version 1)
Quarter: 2013Q4

REPORT INFORMATION
  Report Type: Spontaneous
  Country: US (occurrence: US)
  Receive Date: 20131206
  Receipt Date: 20131206
  Transmission Date: 20140711
  Serious: No
  Sender: FDA-Public Use
  Company Number: US-GILEAD-2009-0023255

PATIENT
  Sex: Male
  Weight: 117.93 kg

DRUGS (14)
  1. LETAIRIS [Suspect]
     Indication: PULMONARY ARTERIAL HYPERTENSION
     Route: 048
     Dates: start: 20090504
  2. REVATIO [Concomitant]
  3. FUROSEMIDE [Concomitant]
  4. EXFORGE [Concomitant]
  5. ASPIRIN [Concomitant]
  6. VERAPAMIL [Concomitant]
  7. ADVAIR [Concomitant]
  8. SPIRIVA [Concomitant]
  9. LIPITOR [Concomitant]
  10. ALBUTEROL [Concomitant]
  11. PREDNISONE [Concomitant]
  12. NASONEX [Concomitant]
  13. AZATHIOPRINE [Concomitant]
  14. OMEPRAZOLE [Concomitant]

REACTIONS (1)
  - Oedema [Unknown]
